FAERS Safety Report 10024254 (Version 2)
Quarter: 2014Q1

REPORT INFORMATION
  Report Type: Report from Study
  Country: US (occurrence: US)
  Receive Date: 20140320
  Receipt Date: 20140328
  Transmission Date: 20141002
  Serious: Yes (Hospitalization)
  Sender: FDA-Public Use
  Company Number: US-JNJFOC-20140309120

PATIENT
  Age: 9 Year
  Sex: Male
  Weight: 24.1 kg

DRUGS (9)
  1. REMICADE [Suspect]
     Indication: INFLAMMATORY BOWEL DISEASE
     Route: 042
     Dates: start: 20090517
  2. METHOTREXATE [Concomitant]
     Route: 065
  3. FOLIC ACID [Concomitant]
     Route: 065
  4. FERROUS SULFATE [Concomitant]
     Route: 065
  5. OMEPRAZOLE [Concomitant]
     Route: 065
  6. CALCIUM/VIT D [Concomitant]
     Route: 065
  7. SINGULAIR [Concomitant]
     Route: 065
  8. ALBUTEROL [Concomitant]
     Route: 065
  9. ANTIBIOTICS [Concomitant]
     Indication: INFLAMMATORY BOWEL DISEASE
     Route: 065

REACTIONS (2)
  - Large intestinal stenosis [Recovered/Resolved]
  - Crohn^s disease [Recovered/Resolved]
